FAERS Safety Report 20849853 (Version 3)
Quarter: 2022Q2

REPORT INFORMATION
  Report Type: Report from Study
  Country: US (occurrence: US)
  Receive Date: 20220519
  Receipt Date: 20220628
  Transmission Date: 20220721
  Serious: Yes (Hospitalization)
  Sender: FDA-Public Use
  Company Number: US-GLAXOSMITHKLINE-US2022GSK077914

PATIENT

DRUGS (4)
  1. DOSTARLIMAB [Suspect]
     Active Substance: DOSTARLIMAB
     Indication: Breast cancer
     Dosage: 175 MG, Z-ONCE EVERY 3 WEEK
     Route: 042
     Dates: start: 20220412, end: 20220412
  2. CARBOPLATIN [Suspect]
     Active Substance: CARBOPLATIN
     Indication: Breast cancer
     Dosage: 500 MG, Z-ONCE EVERY WEEK
     Route: 042
     Dates: start: 20220412, end: 20220412
  3. PACLITAXEL [Suspect]
     Active Substance: PACLITAXEL
     Indication: Breast cancer
     Dosage: 30 X 13 CAPSULES, Z- DAILY, 3 DAYS A WEEK
     Route: 048
     Dates: start: 20220412
  4. ENCEQUIDAR MESYLATE MONOHYDRATE [Suspect]
     Active Substance: ENCEQUIDAR MESYLATE MONOHYDRATE
     Dosage: 15 X 1 CAPSULE, Z- DAILY, 3 DAYS A WEEK
     Route: 048
     Dates: start: 20220412

REACTIONS (1)
  - Meningitis aseptic [Recovered/Resolved]

NARRATIVE: CASE EVENT DATE: 20220510
